FAERS Safety Report 20517265 (Version 1)
Quarter: 2022Q1

REPORT INFORMATION
  Report Type: Spontaneous
  Country: US (occurrence: None)
  Receive Date: 20220224
  Receipt Date: 20220224
  Transmission Date: 20220424
  Serious: No
  Sender: FDA-Public Use
  Company Number: None

PATIENT
  Age: 47 Year
  Sex: Male

DRUGS (1)
  1. DIMETHYL FUMARATE [Suspect]
     Active Substance: DIMETHYL FUMARATE
     Dosage: FREQUENCY : TWICE A DAY;?
     Route: 048

REACTIONS (4)
  - Inflammation [None]
  - Neoplasm [None]
  - Magnetic resonance imaging abnormal [None]
  - Peripheral nerve lesion [None]

NARRATIVE: CASE EVENT DATE: 20220224
